FAERS Safety Report 8384980-8 (Version None)
Quarter: 2012Q2

REPORT INFORMATION
  Report Type: 
  Country: None (occurrence: None)
  Receive Date: 20120524
  Receipt Date: 20120522
  Transmission Date: 20120825
  Serious: Yes (Hospitalization, Other)
  Sender: FDA-Public Use
  Company Number: US-ROCHE-1027283

PATIENT
  Sex: Female
  Weight: 104.42 kg

DRUGS (4)
  1. PROVENTIL [Concomitant]
     Indication: ASTHMA
     Dates: start: 19981111
  2. ADVAIR DISKUS 100/50 [Concomitant]
     Indication: ASTHMA
     Dosage: 1 PUFF EVERY 12 HOURS; STRENGTH: 250/50
     Dates: start: 20020917
  3. XOLAIR [Suspect]
     Indication: ASTHMA
     Dates: start: 20090101
  4. XOPENEX [Concomitant]
     Indication: ASTHMA
     Dosage: ONE PUFF EVERY 6 HOURS TAKEN AS NEEDED

REACTIONS (4)
  - CARCINOID TUMOUR PULMONARY [None]
  - BLOOD IRON DECREASED [None]
  - LUNG NEOPLASM MALIGNANT [None]
  - CHOLELITHIASIS [None]
